FAERS Safety Report 11992702 (Version 1)
Quarter: 2016Q1

REPORT INFORMATION
  Report Type: Spontaneous
  Country: US (occurrence: None)
  Receive Date: 20160202
  Receipt Date: 20160202
  Transmission Date: 20160526
  Serious: Yes (Death)
  Sender: FDA-Public Use
  Company Number: None

PATIENT
  Age: 56 Year
  Sex: Male

DRUGS (7)
  1. AFINITOR [Suspect]
     Active Substance: EVEROLIMUS
     Indication: RENAL CANCER
     Route: 048
  2. ENALAPRIL [Concomitant]
     Active Substance: ENALAPRIL
  3. KLONOPIN [Concomitant]
     Active Substance: CLONAZEPAM
  4. XARELTO [Concomitant]
     Active Substance: RIVAROXABAN
  5. DEXAMETHASON [Concomitant]
     Active Substance: DEXAMETHASONE
  6. TEMAZEPAM. [Concomitant]
     Active Substance: TEMAZEPAM
  7. ATENOLOL. [Concomitant]
     Active Substance: ATENOLOL

REACTIONS (1)
  - Malignant neoplasm progression [None]

NARRATIVE: CASE EVENT DATE: 20160122
